FAERS Safety Report 8023263-2 (Version None)
Quarter: 2012Q1

REPORT INFORMATION
  Report Type: 
  Country: None (occurrence: None)
  Receive Date: 20120104
  Receipt Date: 20111221
  Transmission Date: 20120608
  Serious: Yes (Hospitalization)
  Sender: FDA-Public Use
  Company Number: US-MYLANLABS-2011S1026239

PATIENT
  Age: 38 Year
  Sex: Female

DRUGS (3)
  1. HYDROXYCITRIC ACID [Suspect]
     Dosage: 500 MG/DAY 5 DAYS PER WEEK
     Route: 065
  2. RANITIDINE [Suspect]
     Dosage: 150 MG/DAY
     Route: 065
  3. PROCET                             /01554201/ [Concomitant]
     Indication: ABDOMINAL PAIN
     Dosage: HYDROCODONE/PARACETAMOL 5/500
     Route: 065

REACTIONS (1)
  - RENAL FAILURE ACUTE [None]
